FAERS Safety Report 9813164 (Version 1)
Quarter: 2014Q1

REPORT INFORMATION
  Report Type: Spontaneous
  Country: GB (occurrence: GB)
  Receive Date: 20140113
  Receipt Date: 20140113
  Transmission Date: 20141002
  Serious: Yes (Other)
  Sender: FDA-Public Use
  Company Number: GB-GALDERMA-GB14000090

PATIENT
  Age: 21 Year
  Sex: Female
  Weight: 47 kg

DRUGS (5)
  1. EPIDUO [Suspect]
     Dosage: 0.1%-2.5%
     Route: 061
     Dates: start: 20131216
  2. AVEENO [Concomitant]
     Dates: start: 20131216
  3. HYDROCORTISONE [Concomitant]
     Dates: start: 20131216
  4. MEFENAMIC ACID [Concomitant]
     Dates: start: 20131216
  5. PRO D3 [Concomitant]
     Dates: start: 20131216

REACTIONS (1)
  - Eye swelling [Recovering/Resolving]
